FAERS Safety Report 18069202 (Version 4)
Quarter: 2020Q3

REPORT INFORMATION
  Report Type: Spontaneous
  Country: US (occurrence: US)
  Receive Date: 20200725
  Receipt Date: 20200909
  Transmission Date: 20201103
  Serious: Yes (Hospitalization, Other)
  Sender: FDA-Public Use
  Company Number: US-MACLEODS PHARMACEUTICALS US LTD-MAC2020027397

PATIENT

DRUGS (11)
  1. CLONIDINE. [Concomitant]
     Active Substance: CLONIDINE
     Indication: AGITATION
     Dosage: 0.1 MILLIGRAM, QD, EVERY MORNING, IMMEDIATE RELEASE
     Route: 048
  2. ZYPREXA [Suspect]
     Active Substance: OLANZAPINE
     Dosage: 5 MILLIGRAM IN THE MORNING
     Route: 048
  3. DULOXETINE. [Concomitant]
     Active Substance: DULOXETINE
     Indication: AGITATION
     Dosage: 60 MILLIGRAM, QD, IMMEDIATE RELEASE
     Route: 048
  4. ARIPIPRAZOLE. [Suspect]
     Active Substance: ARIPIPRAZOLE
     Indication: FRAGILE X SYNDROME
     Dosage: 2.5 MILLIGRAM, QD
     Route: 065
  5. ZYPREXA [Suspect]
     Active Substance: OLANZAPINE
     Indication: AGITATION
     Dosage: 20 MILLIGRAM, QD DAILY 4 TO 5 DAYS/WEEK
     Route: 048
  6. RISPERIDONE. [Concomitant]
     Active Substance: RISPERIDONE
     Indication: FRAGILE X SYNDROME
     Dosage: 0.5 MILLIGRAM, BID
     Route: 048
  7. ARIPIPRAZOLE. [Suspect]
     Active Substance: ARIPIPRAZOLE
     Dosage: 5 MILLIGRAM, QD
     Route: 065
  8. CLONIDINE. [Concomitant]
     Active Substance: CLONIDINE
     Dosage: 0.3 MILLIGRAM, QD, AT BEDTIME, IMMEDIATE RELEASE
     Route: 048
  9. ZYPREXA [Suspect]
     Active Substance: OLANZAPINE
     Indication: AGGRESSION
     Dosage: 5 MILLIGRAM, BID, REDUCED
     Route: 048
  10. ZYPREXA [Suspect]
     Active Substance: OLANZAPINE
     Indication: FRAGILE X SYNDROME
     Dosage: 7.5 MILLIGRAM, BID, INCREASED
     Route: 048
  11. ZYPREXA [Suspect]
     Active Substance: OLANZAPINE
     Dosage: 7.5 MILLIGRAM AT BEDTIME
     Route: 048

REACTIONS (3)
  - Withdrawal syndrome [Recovered/Resolved]
  - Dystonia [Unknown]
  - Oculogyric crisis [Recovered/Resolved]
